FAERS Safety Report 7594953-0 (Version None)
Quarter: 2011Q3

REPORT INFORMATION
  Report Type: 
  Country: None (occurrence: None)
  Receive Date: 20110707
  Receipt Date: 20110701
  Transmission Date: 20111222
  Serious: Yes (Other)
  Sender: FDA-Public Use
  Company Number: US-SANOFI-AVENTIS-2011SA042462

PATIENT
  Age: 83 Year
  Sex: Male

DRUGS (11)
  1. CENTRUM [Concomitant]
     Route: 065
  2. METFORMIN HCL [Concomitant]
     Indication: GLUCOSE TOLERANCE IMPAIRED
     Route: 065
  3. MULTAQ [Suspect]
     Indication: ATRIAL FLUTTER
     Route: 048
     Dates: start: 20110601
  4. CARDIZEM [Suspect]
     Route: 065
  5. ATORVASTATIN [Concomitant]
     Route: 065
  6. DABIGATRAN ETEXILATE [Concomitant]
  7. UROXATRAL [Suspect]
     Route: 048
  8. VASOTEC [Concomitant]
     Route: 065
  9. CARDIZEM [Suspect]
     Route: 065
  10. COSAMIN DS [Concomitant]
     Route: 065
  11. MULTAQ [Suspect]
     Indication: ATRIAL FIBRILLATION
     Route: 048
     Dates: start: 20110601

REACTIONS (5)
  - ATRIAL FIBRILLATION [None]
  - BLOOD PRESSURE DECREASED [None]
  - DIZZINESS [None]
  - HEART RATE IRREGULAR [None]
  - LETHARGY [None]
